FAERS Safety Report 8144311-5 (Version None)
Quarter: 2012Q1

REPORT INFORMATION
  Report Type: 
  Country: None (occurrence: None)
  Receive Date: 20120217
  Receipt Date: 20120207
  Transmission Date: 20120608
  Serious: Yes (Death, Life-Threatening, Hospitalization)
  Sender: FDA-Public Use
  Company Number: US-ROCHE-1012467

PATIENT
  Sex: Female

DRUGS (5)
  1. HERCEPTIN [Suspect]
     Dosage: OVER 1 HOUR ON DAY 1 FOR 12 WEEKS STARTING ON WEEK 13
     Route: 042
  2. DOXORUBICIN HCL [Suspect]
     Indication: BREAST CANCER
     Dosage: ON DAY 1, FOR 4 CYCLES
     Route: 042
     Dates: start: 20031124, end: 20040419
  3. HERCEPTIN [Suspect]
     Indication: BREAST CANCER
     Dosage: LOADING DOSE
     Route: 042
     Dates: end: 20040419
  4. CYCLOPHOSPHAMIDE [Suspect]
     Indication: BREAST CANCER
     Dosage: OVER 30 MIN ON DAY 1 FOR 4 CYCLES
     Route: 042
     Dates: start: 20031124, end: 20040419
  5. PACLITAXEL [Suspect]
     Indication: BREAST CANCER
     Dosage: OVER 1 HOUR ON DAY 1 FOR 12 WEEKS
     Route: 042
     Dates: start: 20031124, end: 20040419

REACTIONS (3)
  - PNEUMONITIS [None]
  - EMBOLISM [None]
  - RESPIRATORY ARREST [None]
